FAERS Safety Report 7799645-0 (Version None)
Quarter: 2011Q4

REPORT INFORMATION
  Report Type: 
  Country: None (occurrence: None)
  Receive Date: 20111006
  Receipt Date: 20110929
  Transmission Date: 20120403
  Serious: Yes (Hospitalization)
  Sender: FDA-Public Use
  Company Number: US-AMGEN-USASP2011036687

PATIENT
  Sex: Female

DRUGS (1)
  1. PROLIA [Suspect]
     Indication: OSTEOPOROSIS POSTMENOPAUSAL
     Dosage: UNK
     Dates: start: 20110628

REACTIONS (7)
  - BLOOD MAGNESIUM DECREASED [None]
  - BLOOD CHOLESTEROL INCREASED [None]
  - TOOTH DISORDER [None]
  - BACK PAIN [None]
  - BLOOD POTASSIUM DECREASED [None]
  - MUSCLE SPASMS [None]
  - BLOOD CALCIUM DECREASED [None]
